FAERS Safety Report 6974571-5 (Version None)
Quarter: 2010Q3

REPORT INFORMATION
  Report Type: 
  Country: None (occurrence: None)
  Receive Date: 20100909
  Receipt Date: 20100909
  Transmission Date: 20110219
  Serious: Yes (Hospitalization)
  Sender: FDA-Public Use
  Company Number: None

PATIENT
  Sex: Male
  Weight: 86.637 kg

DRUGS (1)
  1. DIVALPROEX SODIUM [Suspect]
     Indication: MOOD ALTERED
     Dosage: 1000MG BID PO
     Route: 048
     Dates: start: 20100604, end: 20100616

REACTIONS (1)
  - NEUTROPENIA [None]
